FAERS Safety Report 15241134 (Version 1)
Quarter: 2018Q3

REPORT INFORMATION
  Report Type: Spontaneous
  Country: US (occurrence: US)
  Receive Date: 20180711
  Receipt Date: 20180711
  Transmission Date: 20181010
  Serious: No
  Sender: FDA-Public Use
  Company Number: None

PATIENT
  Age: 57 Year
  Sex: Female

DRUGS (1)
  1. SIMPONI [Suspect]
     Active Substance: GOLIMUMAB
     Dates: start: 20181015, end: 20180711

REACTIONS (2)
  - Inappropriate schedule of drug administration [None]
  - Rash [None]

NARRATIVE: CASE EVENT DATE: 20180706
